FAERS Safety Report 10530333 (Version 1)
Quarter: 2014Q4

REPORT INFORMATION
  Report Type: Spontaneous
  Country: GB (occurrence: GB)
  Receive Date: 20141021
  Receipt Date: 20141021
  Transmission Date: 20150528
  Serious: Yes (Death, Life-Threatening, Hospitalization)
  Sender: FDA-Public Use
  Company Number: GB-TEVA-515411ISR

PATIENT
  Age: 66 Year
  Sex: Female
  Weight: 45 kg

DRUGS (8)
  1. ASPIRIN. [Suspect]
     Active Substance: ASPIRIN
     Dosage: 75MG OD
     Route: 048
     Dates: start: 20110401, end: 20140830
  2. CALCICHEW D3 [Concomitant]
     Active Substance: CALCIUM\CHOLECALCIFEROL
  3. LANSOPRAZOLE. [Concomitant]
     Active Substance: LANSOPRAZOLE
  4. MELOXICAM. [Suspect]
     Active Substance: MELOXICAM
     Indication: OSTEOARTHRITIS
     Route: 048
     Dates: start: 20110401, end: 20140830
  5. MIRTAZAPINE. [Concomitant]
     Active Substance: MIRTAZAPINE
  6. CODEINE PHOSPHATE [Concomitant]
     Active Substance: CODEINE PHOSPHATE
  7. PARACETAMOL [Concomitant]
     Active Substance: ACETAMINOPHEN
  8. NIFEDIPINE. [Concomitant]
     Active Substance: NIFEDIPINE

REACTIONS (8)
  - Excessive granulation tissue [Unknown]
  - Peritonitis [Unknown]
  - Intestinal perforation [Unknown]
  - Abdominal pain [Unknown]
  - Mucosal ulceration [Unknown]
  - Necrosis [Unknown]
  - Intestinal ischaemia [Fatal]
  - Peripheral ischaemia [Not Recovered/Not Resolved]

NARRATIVE: CASE EVENT DATE: 20140904
